FAERS Safety Report 6140952-5 (Version None)
Quarter: 2009Q2

REPORT INFORMATION
  Report Type: 
  Country: None (occurrence: None)
  Receive Date: 20090402
  Receipt Date: 20081017
  Transmission Date: 20091009
  Serious: No
  Sender: FDA-Public Use
  Company Number: US-KINGPHARMUSA00001-K200801214

PATIENT
  Age: 18 Year
  Sex: Female

DRUGS (1)
  1. SKELAXIN [Suspect]
     Dosage: 800 MG, UNK
     Dates: start: 20081016

REACTIONS (1)
  - HEART RATE INCREASED [None]
